FAERS Safety Report 13754906 (Version 2)
Quarter: 2017Q3

REPORT INFORMATION
  Report Type: Spontaneous
  Country: US (occurrence: US)
  Receive Date: 20170714
  Receipt Date: 20170913
  Transmission Date: 20171127
  Serious: Yes (Hospitalization, Other)
  Sender: FDA-Public Use
  Company Number: US-NAPPMUNDI-USA-2017-0139756

PATIENT
  Sex: Male

DRUGS (4)
  1. BETADINE [Suspect]
     Active Substance: POVIDONE-IODINE
     Dosage: UNK UNK, QID
     Route: 061
  2. BETADINE [Suspect]
     Active Substance: POVIDONE-IODINE
     Indication: SKIN INFECTION
     Dosage: UNK
     Route: 061
     Dates: start: 201707
  3. BETADINE [Suspect]
     Active Substance: POVIDONE-IODINE
     Indication: WOUND
     Dosage: UNK UNK, BID
     Route: 061
  4. BETADINE [Suspect]
     Active Substance: POVIDONE-IODINE
     Dosage: UNK UNK, TID
     Route: 061

REACTIONS (8)
  - Infection [Unknown]
  - Limb operation [Unknown]
  - Pain [Unknown]
  - Wound secretion [Unknown]
  - Neoplasm malignant [Unknown]
  - Carpal tunnel syndrome [Unknown]
  - Impaired healing [Unknown]
  - Unevaluable event [Unknown]
